FAERS Safety Report 6943322-2 (Version None)
Quarter: 2010Q3

REPORT INFORMATION
  Report Type: 
  Country: None (occurrence: None)
  Receive Date: 20100826
  Receipt Date: 20100816
  Transmission Date: 20110219
  Serious: Yes (Death, Other)
  Sender: FDA-Public Use
  Company Number: US-PFIZER INC-2010103224

PATIENT
  Sex: Male

DRUGS (1)
  1. SUTENT [Suspect]
     Indication: RENAL CELL CARCINOMA

REACTIONS (5)
  - DISEASE PROGRESSION [None]
  - HYPERTENSION [None]
  - METASTATIC RENAL CELL CARCINOMA [None]
  - PNEUMONIA [None]
  - RESPIRATORY FAILURE [None]
